FAERS Safety Report 6348601-8 (Version None)
Quarter: 2009Q3

REPORT INFORMATION
  Report Type: 
  Country: None (occurrence: None)
  Receive Date: 20090908
  Receipt Date: 20090820
  Transmission Date: 20100115
  Serious: Yes (Death, Hospitalization)
  Sender: FDA-Public Use
  Company Number: 2009AL003262

PATIENT
  Age: 52 Year
  Sex: Female

DRUGS (13)
  1. DIGOXIN [Suspect]
     Dosage: 0.125MG, QD, PO
     Route: 048
  2. CADUET [Concomitant]
  3. DIOVAN [Concomitant]
  4. ESTRADIOL [Concomitant]
  5. METOPROLOL TARTRATE [Concomitant]
  6. METFORMIN HCL [Concomitant]
  7. NEURONTIN [Concomitant]
  8. POTASSIUM CHLORIDE [Concomitant]
  9. TRUSOPT [Concomitant]
  10. ACTOS [Concomitant]
  11. ENALAPRIL MALEATE [Concomitant]
  12. LASIX [Concomitant]
  13. ATOPERLOL [Concomitant]

REACTIONS (15)
  - ANXIETY [None]
  - CATARACT [None]
  - CHOLELITHIASIS [None]
  - CRYING [None]
  - DEPRESSION [None]
  - ECONOMIC PROBLEM [None]
  - FAMILY STRESS [None]
  - HOT FLUSH [None]
  - INJURY [None]
  - MOOD SWINGS [None]
  - PAIN [None]
  - RENAL FAILURE ACUTE [None]
  - SOCIAL PROBLEM [None]
  - SURGERY [None]
  - THERAPEUTIC AGENT TOXICITY [None]
